FAERS Safety Report 5509485-0 (Version None)
Quarter: 2007Q4

REPORT INFORMATION
  Report Type: 
  Country: None (occurrence: None)
  Receive Date: 20071107
  Receipt Date: 20071026
  Transmission Date: 20080405
  Serious: Yes (Hospitalization)
  Sender: FDA-Public Use
  Company Number: US-PFIZER INC-2007087403

PATIENT
  Sex: Female
  Weight: 74.3 kg

DRUGS (3)
  1. SUTENT [Suspect]
     Indication: SYNOVIAL SARCOMA
     Route: 048
  2. LOVENOX [Concomitant]
     Route: 058
  3. SYNTHROID [Concomitant]
     Indication: HYPOTHYROIDISM
     Route: 048

REACTIONS (1)
  - DYSPNOEA EXERTIONAL [None]
